FAERS Safety Report 7590768-8 (Version None)
Quarter: 2011Q3

REPORT INFORMATION
  Report Type: 
  Country: None (occurrence: None)
  Receive Date: 20110705
  Receipt Date: 20110622
  Transmission Date: 20111222
  Serious: Yes (Other)
  Sender: FDA-Public Use
  Company Number: PHFR2011GB02603

PATIENT
  Sex: Male

DRUGS (6)
  1. AFINITOR [Suspect]
     Indication: RENAL CELL CARCINOMA
     Dosage: 10 MG, UNK
     Route: 048
     Dates: start: 20110315, end: 20110412
  2. AFINITOR [Suspect]
     Route: 048
     Dates: start: 20110419
  3. PERINDOPRIL [Concomitant]
     Dosage: 4 MG, UNK
     Route: 048
  4. RANITIDINE [Concomitant]
     Dosage: 150 MG, UNK
     Route: 048
  5. NICORANDIL [Concomitant]
     Dosage: 10 MG, UNK
     Route: 048
  6. BISOPROLOL FUMARATE [Concomitant]
     Dosage: 5 MG, UNK
     Route: 048

REACTIONS (3)
  - MUCOSAL INFLAMMATION [None]
  - SKIN EXFOLIATION [None]
  - RASH [None]
